FAERS Safety Report 11701297 (Version 1)
Quarter: 2015Q4

REPORT INFORMATION
  Report Type: Spontaneous
  Country: US (occurrence: US)
  Receive Date: 20151105
  Receipt Date: 20151105
  Transmission Date: 20160304
  Serious: Yes (Hospitalization, Other)
  Sender: FDA-Public Use
  Company Number: US-BAXTER-2015BAX058317

PATIENT
  Age: 87 Year
  Sex: Female

DRUGS (2)
  1. 0.9% SODIUM CHLORIDE INJECTION [Suspect]
     Active Substance: SODIUM CHLORIDE
     Indication: HYPOTENSION
     Route: 040
  2. VANCOMYCIN INJECTION, USP [Suspect]
     Active Substance: VANCOMYCIN
     Indication: OSTEOMYELITIS
     Route: 042

REACTIONS (7)
  - Acute kidney injury [Recovering/Resolving]
  - Urosepsis [Recovering/Resolving]
  - Mental status changes [Unknown]
  - Septic shock [Recovering/Resolving]
  - Metabolic acidosis [Recovering/Resolving]
  - Rhabdomyolysis [Unknown]
  - Fall [Unknown]
